FAERS Safety Report 7040538-4 (Version None)
Quarter: 2010Q4

REPORT INFORMATION
  Report Type: 
  Country: None (occurrence: None)
  Receive Date: 20101008
  Receipt Date: 20101008
  Transmission Date: 20110411
  Serious: Yes (Hospitalization)
  Sender: FDA-Public Use
  Company Number: None

PATIENT
  Age: 62 Year
  Sex: Female
  Weight: 122.4712 kg

DRUGS (1)
  1. MUPIROCIN [Suspect]
     Indication: SKIN ULCER
     Dosage: RUBBED ON ANKLE 2X/DAY TOPICAL 060
     Route: 061
     Dates: start: 20100827, end: 20100828

REACTIONS (4)
  - BLISTER [None]
  - BURNING SENSATION [None]
  - ERYTHEMA [None]
  - INFECTION [None]
